FAERS Safety Report 9767803 (Version 3)
Quarter: 2014Q1

REPORT INFORMATION
  Report Type: Spontaneous
  Country: FR (occurrence: FR)
  Receive Date: 20131217
  Receipt Date: 20140220
  Transmission Date: 20141002
  Serious: Yes (Other)
  Sender: FDA-Public Use
  Company Number: PHHY2013FR147040

PATIENT
  Age: 73 Year
  Sex: Female
  Weight: 136 kg

DRUGS (6)
  1. METFORMIN SANDOZ [Suspect]
     Indication: TYPE 2 DIABETES MELLITUS
     Dosage: 0.5 DF, QD
     Route: 048
     Dates: start: 201203
  2. LEVOTHYROX [Concomitant]
     Dosage: 50 UG, QD
  3. TANGANIL//ACETYLLEUCINE [Concomitant]
     Dosage: 2 DF, BID
  4. ACEBUTOLOL [Concomitant]
     Dosage: 400 MG, QD
  5. DOLIPRANE [Concomitant]
  6. KARDEGIC [Concomitant]
     Dosage: 1 DF, QD

REACTIONS (1)
  - Wrong technique in drug usage process [Unknown]
